FAERS Safety Report 7763765-7 (Version None)
Quarter: 2011Q3

REPORT INFORMATION
  Report Type: 
  Country: None (occurrence: None)
  Receive Date: 20110916
  Receipt Date: 20110906
  Transmission Date: 20111222
  Serious: Yes (Other)
  Sender: FDA-Public Use
  Company Number: 2011SP035403

PATIENT
  Age: 33 Year
  Sex: Female
  Weight: 80 kg

DRUGS (14)
  1. ZOLPIDEM TARTRATE [Suspect]
     Indication: PRODUCT USED FOR UNKNOWN INDICATION
  2. LEVONORGESTREL AND ETHINYL ESTRADIOL [Concomitant]
  3. RAVONA (PENTOBARBITURATE) (PENTOBARBITAL CALCIUM) [Suspect]
     Indication: PRODUCT USED FOR UNKNOWN INDICATION
  4. DORAL [Suspect]
     Indication: PRODUCT USED FOR UNKNOWN INDICATION
  5. HALCION [Suspect]
     Indication: PRODUCT USED FOR UNKNOWN INDICATION
  6. SILECE (FLUNITRAZEPAM) [Suspect]
     Indication: PRODUCT USED FOR UNKNOWN INDICATION
  7. LORAZEPAM [Suspect]
     Indication: PRODUCT USED FOR UNKNOWN INDICATION
  8. MARVELON (DESOGESTREL/ETHINYLESTRADIOL /00570801/) [Suspect]
     Indication: CONTRACEPTION
     Dosage: 1 DF;QD;PO
     Route: 048
     Dates: start: 20090101, end: 20110726
  9. MARVELON (DESOGESTREL/ETHINYLESTRADIOL /00570801/) [Suspect]
     Indication: MENSTRUATION IRREGULAR
     Dosage: 1 DF;QD;PO
     Route: 048
     Dates: start: 20090101, end: 20110726
  10. DEPAS (ETIZOLAM) [Suspect]
     Indication: PRODUCT USED FOR UNKNOWN INDICATION
  11. DIAZEPAM [Suspect]
     Indication: PRODUCT USED FOR UNKNOWN INDICATION
  12. ROZEREM [Suspect]
     Indication: PRODUCT USED FOR UNKNOWN INDICATION
  13. ZOLOFT [Suspect]
     Indication: PRODUCT USED FOR UNKNOWN INDICATION
  14. SEROQUEL [Suspect]
     Indication: PRODUCT USED FOR UNKNOWN INDICATION

REACTIONS (5)
  - METRORRHAGIA [None]
  - ABORTION INDUCED [None]
  - MATERNAL EXPOSURE DURING PREGNANCY [None]
  - PREGNANCY ON ORAL CONTRACEPTIVE [None]
  - DRUG EFFECT DECREASED [None]
